FAERS Safety Report 12405253 (Version 1)
Quarter: 2016Q2

REPORT INFORMATION
  Report Type: Spontaneous
  Country: US (occurrence: None)
  Receive Date: 20160525
  Receipt Date: 20160525
  Transmission Date: 20160815
  Serious: Yes (Other)
  Sender: FDA-Public Use
  Company Number: None

PATIENT
  Age: 29 Year
  Sex: Female

DRUGS (4)
  1. PLAN B [Suspect]
     Active Substance: LEVONORGESTREL
     Indication: CONTRACEPTION
     Dosage: TAKEN BY MOUTH
     Route: 048
     Dates: start: 20160312
  2. BIOTIN [Concomitant]
     Active Substance: BIOTIN
  3. FISH OIL [Concomitant]
     Active Substance: FISH OIL
  4. WOMANS VITAMINS [Concomitant]

REACTIONS (6)
  - Pregnancy [None]
  - Depression [None]
  - Fatigue [None]
  - Pregnancy on contraceptive [None]
  - Haemorrhage [None]
  - Mood altered [None]

NARRATIVE: CASE EVENT DATE: 20160313
